FAERS Safety Report 15352223 (Version 2)
Quarter: 2019Q1

REPORT INFORMATION
  Report Type: Spontaneous
  Country: NL (occurrence: NL)
  Receive Date: 20180905
  Receipt Date: 20190304
  Transmission Date: 20190417
  Serious: Yes (Hospitalization)
  Sender: FDA-Public Use
  Company Number: NL-PFIZER INC-2018353615

PATIENT
  Age: 47 Year
  Sex: Female

DRUGS (5)
  1. BETAMETHASONE. [Concomitant]
     Active Substance: BETAMETHASONE
     Dosage: UNK
     Route: 050
  2. FLUCONAZOLE. [Suspect]
     Active Substance: FLUCONAZOLE
     Indication: INFECTION
     Dosage: 500 MG, 4X/DAY
     Route: 003
     Dates: start: 20180719, end: 20180721
  3. DARUNAVIR [Concomitant]
     Active Substance: DARUNAVIR
     Dosage: 800 MG, 1X/DAY
  4. RITONAVIR. [Concomitant]
     Active Substance: RITONAVIR
     Dosage: 100 MG, 1X/DAY
  5. EMTRICITABINE/TENOFOVIR [Concomitant]
     Dosage: UNK

REACTIONS (3)
  - Jaundice [Recovering/Resolving]
  - Blood bilirubin increased [Recovering/Resolving]
  - Product use issue [Unknown]

NARRATIVE: CASE EVENT DATE: 20180721
